FAERS Safety Report 21360346 (Version 1)
Quarter: 2022Q3

REPORT INFORMATION
  Report Type: Spontaneous
  Country: US (occurrence: US)
  Receive Date: 20220921
  Receipt Date: 20220921
  Transmission Date: 20221027
  Serious: No
  Sender: FDA-Public Use
  Company Number: US-BAYER-2022A128307

PATIENT
  Age: 83 Year
  Sex: Male
  Weight: 83.9 kg

DRUGS (3)
  1. ADEMPAS [Suspect]
     Active Substance: RIOCIGUAT
     Dosage: UNK
  2. TYVASO [Suspect]
     Active Substance: TREPROSTINIL
     Indication: Pulmonary arterial hypertension
     Dosage: 18 ?G, QID
     Dates: start: 20220817
  3. ESBRIET [Concomitant]
     Active Substance: PIRFENIDONE
     Dosage: UNK

REACTIONS (1)
  - Dizziness [None]

NARRATIVE: CASE EVENT DATE: 20220101
